FAERS Safety Report 25627565 (Version 2)
Quarter: 2025Q3

REPORT INFORMATION
  Report Type: Spontaneous
  Country: CA (occurrence: CA)
  Receive Date: 20250731
  Receipt Date: 20250926
  Transmission Date: 20251021
  Serious: Yes (Other)
  Sender: PFIZER
  Company Number: CA-PFIZER INC-202500153468

PATIENT
  Age: 67 Year
  Sex: Female

DRUGS (2)
  1. IXIFI [Suspect]
     Active Substance: INFLIXIMAB-QBTX
     Indication: Crohn^s disease
     Route: 042
     Dates: start: 20250505
  2. IXIFI [Suspect]
     Active Substance: INFLIXIMAB-QBTX
     Route: 042
     Dates: start: 20250702

REACTIONS (6)
  - Hepatic cirrhosis [Unknown]
  - Arthralgia [Unknown]
  - Back pain [Unknown]
  - Headache [Unknown]
  - Peripheral swelling [Unknown]
  - Off label use [Unknown]

NARRATIVE: CASE EVENT DATE: 20250101
